FAERS Safety Report 7154673-3 (Version None)
Quarter: 2010Q4

REPORT INFORMATION
  Report Type: 
  Country: None (occurrence: None)
  Receive Date: 20101214
  Receipt Date: 20091104
  Transmission Date: 20110411
  Serious: No
  Sender: FDA-Public Use
  Company Number: US-AMGEN-KDL372928

PATIENT

DRUGS (6)
  1. ENBREL [Suspect]
     Indication: RHEUMATOID ARTHRITIS
     Dosage: 50 MG, QWK
  2. ESCITALOPRAM [Concomitant]
     Dosage: UNK UNK, UNK
  3. FOLIC ACID [Concomitant]
     Dosage: 4 MG, QD
  4. OMEPRAZOLE [Concomitant]
     Dosage: UNK UNK, UNK
  5. METHOTREXATE [Concomitant]
     Dosage: UNK UNK, UNK
  6. FLUTICASONE PROPIONATE [Concomitant]
     Dosage: UNK UNK, UNK

REACTIONS (3)
  - INCORRECT STORAGE OF DRUG [None]
  - JOINT LOCK [None]
  - OEDEMA PERIPHERAL [None]
